FAERS Safety Report 6838468-3 (Version None)
Quarter: 2010Q3

REPORT INFORMATION
  Report Type: 
  Country: None (occurrence: None)
  Receive Date: 20100713
  Receipt Date: 20070613
  Transmission Date: 20110219
  Serious: No
  Sender: FDA-Public Use
  Company Number: US-PFIZER INC-2007050008

PATIENT
  Sex: Male
  Weight: 86.363 kg

DRUGS (5)
  1. CHANTIX [Suspect]
     Indication: SMOKING CESSATION THERAPY
     Dates: start: 20070528
  2. ADVAIR DISKUS 100/50 [Concomitant]
  3. ZYRTEC [Concomitant]
  4. MONTELUKAST SODIUM [Concomitant]
  5. ALBUTEROL [Concomitant]

REACTIONS (5)
  - DYSPEPSIA [None]
  - FAECES DISCOLOURED [None]
  - LAZINESS [None]
  - PAIN [None]
  - TERMINAL INSOMNIA [None]
